FAERS Safety Report 9397972 (Version 1)
Quarter: 2013Q3

REPORT INFORMATION
  Report Type: Spontaneous
  Country: DK (occurrence: DK)
  Receive Date: 20130712
  Receipt Date: 20130712
  Transmission Date: 20140515
  Serious: Yes (Hospitalization)
  Sender: FDA-Public Use
  Company Number: PHHY2013DK071632

PATIENT
  Age: 73 Year
  Sex: Male

DRUGS (2)
  1. DICILLIN [Suspect]
     Indication: SKIN INFECTION
     Dosage: 1000 MG, TID
     Route: 048
     Dates: start: 20130530, end: 20130611
  2. HERACILLIN [Suspect]
     Indication: SKIN INFECTION
     Dosage: UNK UKN, UNK
     Route: 048
     Dates: start: 20130530, end: 20130611

REACTIONS (1)
  - Renal impairment [Not Recovered/Not Resolved]
